FAERS Safety Report 16828139 (Version 1)
Quarter: 2019Q3

REPORT INFORMATION
  Report Type: Report from Study
  Country: None (occurrence: BR)
  Receive Date: 20190919
  Receipt Date: 20190919
  Transmission Date: 20191005
  Serious: Yes (Other)
  Sender: FDA-Public Use
  Company Number: BR-ABBVIE-19K-020-2908250-00

PATIENT
  Sex: Female

DRUGS (5)
  1. SANDRENA [Concomitant]
     Active Substance: ESTRADIOL
     Indication: HORMONE LEVEL ABNORMAL
  2. HYDROCHLOROTHIAZIDE. [Concomitant]
     Active Substance: HYDROCHLOROTHIAZIDE
     Indication: PRODUCT USED FOR UNKNOWN INDICATION
  3. HUMIRA [Suspect]
     Active Substance: ADALIMUMAB
     Indication: ANKYLOSING SPONDYLITIS
     Route: 058
     Dates: start: 201906, end: 2019
  4. LOSARTAN. [Concomitant]
     Active Substance: LOSARTAN
     Indication: PRODUCT USED FOR UNKNOWN INDICATION
  5. CHAMOMILLA RECUTITA [Concomitant]
     Indication: PRODUCT USED FOR UNKNOWN INDICATION

REACTIONS (12)
  - Depression [Unknown]
  - Insomnia [Unknown]
  - Retinal detachment [Not Recovered/Not Resolved]
  - Intraocular pressure increased [Unknown]
  - Nervousness [Unknown]
  - Crying [Unknown]
  - Vitreous haemorrhage [Unknown]
  - Dry skin [Unknown]
  - Alopecia [Unknown]
  - Visual impairment [Unknown]
  - Anxiety [Not Recovered/Not Resolved]
  - Breast disorder [Unknown]

NARRATIVE: CASE EVENT DATE: 2019
